FAERS Safety Report 17192294 (Version 1)
Quarter: 2019Q4

REPORT INFORMATION
  Report Type: Spontaneous
  Country: US (occurrence: US)
  Receive Date: 20191212
  Receipt Date: 20191212
  Transmission Date: 20200122
  Serious: No
  Sender: FDA-Public Use
  Company Number: None

PATIENT
  Age: 82 Year
  Sex: Male
  Weight: 90.9 kg

DRUGS (1)
  1. TRI-MOXI IMPRIMIS [Suspect]
     Active Substance: MOXIFLOXACIN\TRIAMCINOLONE
     Indication: CATARACT
     Dosage: ?          OTHER FREQUENCY:ONE TIME;?
     Route: 047
     Dates: start: 20191118, end: 20191118

REACTIONS (5)
  - Cataract operation complication [None]
  - Adverse drug reaction [None]
  - Vitreous floaters [None]
  - Corneal deposits [None]
  - Vision blurred [None]

NARRATIVE: CASE EVENT DATE: 20191118
